FAERS Safety Report 7270400 (Version 4)
Quarter: 2012Q4

REPORT INFORMATION
  Report Type: 
  Country: JP (occurrence: JP)
  Receive Date: 20100204
  Receipt Date: 20121223
  Transmission Date: 20130627
  Serious: Yes (Hospitalization, Other)
  Sender: FDA-Public Use
  Company Number: PHHY2010JP03897

PATIENT
  Age: 82 Year
  Sex: Male
  Weight: 61 kg

DRUGS (2)
  1. GLIVEC [Suspect]
     Indication: GASTROINTESTINAL STROMAL TUMOUR
     Dosage: 400 mg, daily
     Route: 048
     Dates: start: 20080401, end: 20080701
  2. GLIVEC [Suspect]
     Dosage: 300 mg/day
     Route: 048
     Dates: start: 20080702

REACTIONS (6)
  - Bladder transitional cell carcinoma [Recovered/Resolved]
  - Second primary malignancy [Unknown]
  - Haematuria [Unknown]
  - Dizziness [Recovering/Resolving]
  - Decreased appetite [Recovering/Resolving]
  - Malaise [Recovering/Resolving]
